FAERS Safety Report 11026284 (Version 1)
Quarter: 2015Q2

REPORT INFORMATION
  Report Type: Spontaneous
  Country: US (occurrence: US)
  Receive Date: 20150414
  Receipt Date: 20150414
  Transmission Date: 20150821
  Serious: Yes (Other)
  Sender: FDA-Public Use
  Company Number: US-ROXANE LABORATORIES, INC.-2014-BI-21527GD

PATIENT
  Age: 27 Year
  Sex: Male

DRUGS (3)
  1. HYDROXYCHLOROQUINE [Suspect]
     Active Substance: HYDROXYCHLOROQUINE
     Indication: CUTANEOUS SARCOIDOSIS
     Dosage: 400 MG
     Route: 065
  2. PREDNISONE. [Suspect]
     Active Substance: PREDNISONE
     Indication: CUTANEOUS SARCOIDOSIS
     Dosage: 40 MG
     Route: 048
  3. METHOTREXATE [Suspect]
     Active Substance: METHOTREXATE
     Indication: CUTANEOUS SARCOIDOSIS
     Dosage: 1.4286 MG
     Route: 065

REACTIONS (8)
  - Borderline leprosy [Unknown]
  - Leprosy [Unknown]
  - Cough [Unknown]
  - Skin ulcer [Recovered/Resolved]
  - Paraesthesia [Unknown]
  - Night sweats [Unknown]
  - Mycobacterial infection [Unknown]
  - Tuberculoid leprosy [Unknown]

NARRATIVE: CASE EVENT DATE: 2010
